FAERS Safety Report 23500163 (Version 1)
Quarter: 2024Q1

REPORT INFORMATION
  Report Type: Spontaneous
  Country: US (occurrence: US)
  Receive Date: 20240208
  Receipt Date: 20240208
  Transmission Date: 20240409
  Serious: Yes (Hospitalization, Other)
  Sender: FDA-Public Use
  Company Number: US-SA-SAC20240202000556

PATIENT
  Age: 81 Year
  Sex: Male

DRUGS (1)
  1. REZUROCK [Suspect]
     Active Substance: BELUMOSUDIL
     Indication: Chronic graft versus host disease
     Dosage: 200 MG, QD
     Route: 048

REACTIONS (5)
  - COVID-19 [Unknown]
  - Pneumonia [Unknown]
  - Fall [Unknown]
  - Haemoglobin decreased [Unknown]
  - Asthenia [Unknown]
